FAERS Safety Report 6307459-3 (Version None)
Quarter: 2009Q3

REPORT INFORMATION
  Report Type: 
  Country: None (occurrence: None)
  Receive Date: 20090813
  Receipt Date: 20090708
  Transmission Date: 20100115
  Serious: Yes (Hospitalization)
  Sender: FDA-Public Use
  Company Number: US-BRISTOL-MYERS SQUIBB COMPANY-14695811

PATIENT

DRUGS (2)
  1. ERBITUX [Suspect]
  2. IXEMPRA KIT [Suspect]

REACTIONS (1)
  - ADVERSE EVENT [None]
